FAERS Safety Report 13020608 (Version 1)
Quarter: 2016Q4

REPORT INFORMATION
  Report Type: Spontaneous
  Country: CN (occurrence: CN)
  Receive Date: 20161212
  Receipt Date: 20161212
  Transmission Date: 20170207
  Serious: Yes (Other)
  Sender: FDA-Public Use
  Company Number: CN-ABBVIE-16P-035-1806922-00

PATIENT
  Age: 24 Month
  Sex: Male

DRUGS (3)
  1. DEXAMETHASONE (DEXAMETHASONE) [Concomitant]
     Active Substance: DEXAMETHASONE
     Indication: PRODUCT USED FOR UNKNOWN INDICATION
     Dates: start: 20161129
  2. AZITHROMYCIN (AZITHROMYCIN) [Concomitant]
     Active Substance: AZITHROMYCIN ANHYDROUS
     Indication: PRODUCT USED FOR UNKNOWN INDICATION
     Dates: start: 20161201, end: 20161203
  3. DEPAKINE [Suspect]
     Active Substance: VALPROATE SODIUM
     Indication: EPILEPSY
     Route: 048
     Dates: start: 20161014

REACTIONS (3)
  - Tetany [Recovered/Resolved]
  - Weight increased [Not Recovered/Not Resolved]
  - Tic [Recovered/Resolved]

NARRATIVE: CASE EVENT DATE: 20161105
